FAERS Safety Report 24062586 (Version 2)
Quarter: 2024Q3

REPORT INFORMATION
  Report Type: Spontaneous
  Country: MX (occurrence: MX)
  Receive Date: 20240708
  Receipt Date: 20240909
  Transmission Date: 20241017
  Serious: Yes (Death, Hospitalization)
  Sender: ELI LILLY AND CO
  Company Number: MX-ELI_LILLY_AND_COMPANY-MX202407002494

PATIENT
  Age: 18 Year
  Sex: Female

DRUGS (1)
  1. HUMALOG MIX75/25 [Suspect]
     Active Substance: INSULIN LISPRO
     Indication: Suicide attempt
     Dosage: UNK UNK, UNKNOWN
     Route: 065

REACTIONS (3)
  - Brain death [Fatal]
  - Suicide attempt [Fatal]
  - Hypoglycaemia [Fatal]
